FAERS Safety Report 9613514 (Version 3)
Quarter: 2013Q4

REPORT INFORMATION
  Report Type: Report from Study
  Country: GB (occurrence: GB)
  Receive Date: 20131010
  Receipt Date: 20131227
  Transmission Date: 20140711
  Serious: Yes (Other)
  Sender: FDA-Public Use
  Company Number: GB-ROCHE-1286897

PATIENT
  Age: 77 Year
  Sex: Male
  Weight: 70.3 kg

DRUGS (12)
  1. RANIBIZUMAB [Suspect]
     Indication: RETINAL VEIN OCCLUSION
     Route: 050
     Dates: start: 20121002, end: 20121002
  2. RANIBIZUMAB [Suspect]
     Route: 050
     Dates: start: 20121129, end: 20121129
  3. RANIBIZUMAB [Suspect]
     Route: 050
     Dates: start: 20130218, end: 20130218
  4. RANIBIZUMAB [Suspect]
     Route: 050
     Dates: start: 20130430, end: 20130430
  5. RANIBIZUMAB [Suspect]
     Route: 050
     Dates: start: 20130531, end: 20130531
  6. RANIBIZUMAB [Suspect]
     Route: 050
     Dates: start: 20130701, end: 20130701
  7. RANIBIZUMAB [Suspect]
     Route: 050
     Dates: start: 20130828, end: 20130828
  8. OMEPRAZOL [Concomitant]
  9. BISOPROLOL [Concomitant]
  10. DIGOXIN [Concomitant]
  11. WARFARIN [Concomitant]
     Indication: ANTICOAGULANT THERAPY
  12. GLYCERYL TRINITRATE [Concomitant]
     Dosage: SPRAY
     Route: 065

REACTIONS (1)
  - Transient ischaemic attack [Recovered/Resolved]
